FAERS Safety Report 20841455 (Version 1)
Quarter: 2022Q2

REPORT INFORMATION
  Report Type: Other
  Country: US (occurrence: None)
  Receive Date: 20220518
  Receipt Date: 20220518
  Transmission Date: 20220721
  Serious: No
  Sender: FDA-Public Use
  Company Number: US-ROCHE-3014492

PATIENT
  Age: 21 Year
  Sex: Male

DRUGS (6)
  1. VALGANCICLOVIR [Suspect]
     Active Substance: VALGANCICLOVIR
     Indication: Cytomegalovirus colitis
     Route: 048
  2. TOFACITINIB [Concomitant]
     Active Substance: TOFACITINIB
  3. METHYLPREDNISOLONE [Concomitant]
     Active Substance: METHYLPREDNISOLONE
  4. GANCICLOVIR [Concomitant]
     Active Substance: GANCICLOVIR
     Route: 042
  5. PREDNISONE [Concomitant]
     Active Substance: PREDNISONE
  6. OZANIMOD [Concomitant]
     Active Substance: OZANIMOD

REACTIONS (2)
  - Off label use [Unknown]
  - No adverse event [Unknown]
